FAERS Safety Report 5254251-7 (Version None)
Quarter: 2007Q1

REPORT INFORMATION
  Report Type: 
  Country: None (occurrence: None)
  Receive Date: 20070302
  Receipt Date: 20070227
  Transmission Date: 20070707
  Serious: Yes (Other)
  Sender: FDA-Public Use
  Company Number: US-GLAXOSMITHKLINE-A0641147A

PATIENT
  Age: 20 Year
  Sex: Male

DRUGS (7)
  1. WELLBUTRIN XL [Suspect]
     Indication: DEPRESSION
     Dosage: 450MG PER DAY
     Route: 048
     Dates: start: 20060101, end: 20060801
  2. UNSPECIFIED DRUGS [Concomitant]
  3. ILLICIT DRUG(S) [Concomitant]
  4. ILLICIT DRUG(S) [Concomitant]
  5. AMBIEN [Concomitant]
  6. ALCOHOL [Concomitant]
  7. PROZAC [Concomitant]
     Indication: DEPRESSION

REACTIONS (5)
  - CONVULSION [None]
  - HEAD INJURY [None]
  - NAUSEA [None]
  - SWELLING [None]
  - VOMITING [None]
